FAERS Safety Report 6981544-5 (Version None)
Quarter: 2010Q3

REPORT INFORMATION
  Report Type: 
  Country: None (occurrence: None)
  Receive Date: 20100914
  Receipt Date: 20100901
  Transmission Date: 20110219
  Serious: Yes (Disabling)
  Sender: FDA-Public Use
  Company Number: DK-BRACCO-000057

PATIENT
  Sex: Male
  Weight: 60 kg

DRUGS (15)
  1. LANTUS [Concomitant]
     Indication: DIABETES MELLITUS
     Dosage: DOSAGE FORM
     Route: 058
  2. PROPRAL [Concomitant]
     Indication: HYPERTENSION
     Route: 048
  3. PINEX [Concomitant]
     Indication: PAIN
     Route: 048
  4. PETIDIN [Concomitant]
     Indication: PAIN
     Dosage: WHEN NEEDED MAX 4 TIMES A DAY
     Route: 054
  5. CIPRALEX [Concomitant]
     Indication: DEPRESSION
     Route: 048
  6. VITAMIN B [Concomitant]
     Indication: VITAMIN SUPPLEMENTATION
     Dosage: 1 TABLET PER 3 DAILY
     Route: 048
  7. NOVORAPID [Concomitant]
     Indication: DIABETES MELLITUS
     Dosage: DOSAGE FORM
     Route: 042
  8. AMITRIPTYLINE HCL [Concomitant]
     Indication: PAIN
     Dosage: 1 UNIT DAILY
     Route: 048
  9. PRIMPERAN TAB [Concomitant]
     Indication: NAUSEA
     Route: 048
  10. FURIX [Concomitant]
     Indication: DIURETIC THERAPY
     Route: 048
  11. NEXIUM [Concomitant]
     Route: 048
  12. TRANSTEC [Concomitant]
     Indication: PAIN
     Route: 062
  13. CREON [Concomitant]
     Indication: PANCREATIC ENZYMES
     Route: 048
  14. METHADON [Concomitant]
     Indication: PAIN
     Route: 048
  15. CONTRAST MEDIA [Suspect]
     Indication: SCAN WITH CONTRAST
     Route: 042
     Dates: start: 20070912, end: 20070912

REACTIONS (1)
  - NEPHROGENIC SYSTEMIC FIBROSIS [None]
